FAERS Safety Report 5303722-3 (Version None)
Quarter: 2007Q2

REPORT INFORMATION
  Report Type: 
  Country: None (occurrence: None)
  Receive Date: 20070420
  Receipt Date: 20070410
  Transmission Date: 20071010
  Serious: Yes (Hospitalization)
  Sender: FDA-Public Use
  Company Number: CG-MERCK-0704USA01675

PATIENT
  Age: 28 Year
  Sex: Male

DRUGS (1)
  1. MECTIZAN [Suspect]
     Route: 065
     Dates: start: 20061104

REACTIONS (4)
  - AGITATION [None]
  - HAEMATURIA [None]
  - OCULAR HYPERAEMIA [None]
  - URINARY RETENTION [None]
